FAERS Safety Report 10472129 (Version 1)
Quarter: 2014Q3

REPORT INFORMATION
  Report Type: Spontaneous
  Country: US (occurrence: None)
  Receive Date: 20140923
  Receipt Date: 20140923
  Transmission Date: 20150326
  Serious: No
  Sender: FDA-Public Use
  Company Number: None

PATIENT
  Age: 60 Year
  Sex: Female
  Weight: 67.13 kg

DRUGS (9)
  1. MULTI [Concomitant]
  2. PROTACTICS [Concomitant]
  3. HARMONES (RETORA) [Concomitant]
  4. FISHOIL [Concomitant]
  5. LYSINE [Concomitant]
     Active Substance: LYSINE
  6. D [Concomitant]
  7. B [Concomitant]
  8. DULOXETINE [Suspect]
     Active Substance: DULOXETINE
     Indication: ANXIETY
     Dosage: PO,QD,.
     Route: 048
     Dates: start: 20140901, end: 20140908
  9. DULOXETINE [Suspect]
     Active Substance: DULOXETINE
     Indication: DEPRESSION
     Dosage: PO,QD,.
     Route: 048
     Dates: start: 20140901, end: 20140908

REACTIONS (8)
  - Drug ineffective [None]
  - Nausea [None]
  - Feeling abnormal [None]
  - Malaise [None]
  - Product substitution issue [None]
  - Fatigue [None]
  - Headache [None]
  - Anxiety [None]

NARRATIVE: CASE EVENT DATE: 20140901
